FAERS Safety Report 7124652-0 (Version None)
Quarter: 2010Q4

REPORT INFORMATION
  Report Type: 
  Country: None (occurrence: None)
  Receive Date: 20101129
  Receipt Date: 20101115
  Transmission Date: 20110411
  Serious: Yes (Hospitalization)
  Sender: FDA-Public Use
  Company Number: US-ELI_LILLY_AND_COMPANY-US200911002069

PATIENT
  Sex: Female

DRUGS (8)
  1. FORTEO [Suspect]
     Indication: OSTEOPOROSIS
     Dosage: 20 UG, DAILY (1/D)
     Route: 065
     Dates: start: 20090819
  2. BENICAR [Concomitant]
     Dosage: 40 MG, UNKNOWN
     Route: 065
  3. SULAR [Concomitant]
     Dosage: 34 MG, UNKNOWN
     Route: 065
  4. HYDROCHLOROTHIAZIDE [Concomitant]
     Dosage: 25 MG, UNKNOWN
     Route: 065
  5. ASA [Concomitant]
     Dosage: 81 MG, UNKNOWN
     Route: 065
  6. VITAMIN D [Concomitant]
     Dosage: UNK, 2/D
     Route: 065
  7. ATENOLOL [Concomitant]
     Dosage: 95 MG, UNKNOWN
     Route: 065
  8. M.V.I. [Concomitant]
     Dosage: UNK, UNKNOWN
     Route: 065

REACTIONS (3)
  - BACK PAIN [None]
  - INTERVERTEBRAL DISC PROTRUSION [None]
  - MUSCLE SPASMS [None]
